FAERS Safety Report 21574948 (Version 2)
Quarter: 2022Q4

REPORT INFORMATION
  Report Type: Report from Study
  Country: US (occurrence: US)
  Receive Date: 20221110
  Receipt Date: 20221130
  Transmission Date: 20230112
  Serious: No
  Sender: FDA-Public Use
  Company Number: US-ABBVIE-4193839

PATIENT
  Sex: Female

DRUGS (1)
  1. VENCLEXTA [Suspect]
     Active Substance: VENETOCLAX
     Indication: Immunosuppression
     Dosage: TAKE 1 TABLET BY MOUTH DAILY?FORM STRENGTH: 100 MG
     Route: 048

REACTIONS (1)
  - Off label use [Unknown]
